FAERS Safety Report 5156613-5 (Version None)
Quarter: 2006Q4

REPORT INFORMATION
  Report Type: 
  Country: None (occurrence: None)
  Receive Date: 20061122
  Receipt Date: 20061114
  Transmission Date: 20070319
  Serious: Yes (Death, Hospitalization)
  Sender: FDA-Public Use
  Company Number: ES-GILEAD-2006-0010664

PATIENT
  Age: 39 Year
  Sex: Male

DRUGS (4)
  1. TRUVADA [Suspect]
     Route: 048
     Dates: start: 20060914, end: 20060921
  2. TELZIR [Suspect]
     Route: 048
     Dates: start: 20060914, end: 20060921
  3. NORVIR [Suspect]
     Route: 048
     Dates: start: 20060914, end: 20060921
  4. SEPTRA [Concomitant]
     Route: 048
     Dates: start: 20060914, end: 20060921

REACTIONS (3)
  - HEPATORENAL SYNDROME [None]
  - PERITONEAL INFECTION [None]
  - SEPSIS [None]
